FAERS Safety Report 8783126 (Version 1)
Quarter: 2012Q4

REPORT INFORMATION
  Report Type: 
  Country: US (occurrence: US)
  Receive Date: 20120913
  Receipt Date: 20120913
  Transmission Date: 20130627
  Serious: No
  Sender: FDA-Public Use
  Company Number: US-009507513-1208USA008434

PATIENT
  Age: 48 Year
  Sex: Male

DRUGS (13)
  1. PEGINTRON [Suspect]
     Indication: CHRONIC HEPATITIS C
     Dosage: 150 Microgram, qw
     Route: 058
     Dates: start: 20120427
  2. REBETOL [Suspect]
     Dosage: 2 DF, bid
  3. NEUPOGEN [Concomitant]
     Dosage: UNK
     Dates: start: 20120703
  4. NAPROSYN [Concomitant]
  5. NAPROSYN [Concomitant]
  6. LORAZEPAM [Concomitant]
  7. CLINDAMYCIN HYDROCHLORIDE [Concomitant]
  8. DOXYCYCLINE [Concomitant]
  9. SERTRALINE HYDROCHLORIDE [Concomitant]
  10. SULFAMETHOXAZOLE [Concomitant]
  11. OMEPRAZOLE [Concomitant]
  12. HYDROCODONE/APAP [Concomitant]
     Dosage: 7.5 mg/325 mg
  13. VITAMIN D (UNSPECIFIED) [Concomitant]

REACTIONS (1)
  - White blood cell count decreased [Unknown]
